FAERS Safety Report 19690271 (Version 1)
Quarter: 2021Q3

REPORT INFORMATION
  Report Type: Spontaneous
  Country: US (occurrence: US)
  Receive Date: 20210812
  Receipt Date: 20210812
  Transmission Date: 20211014
  Serious: No
  Sender: FDA-Public Use
  Company Number: US-GLAXOSMITHKLINE-US2021169141

PATIENT
  Sex: Female

DRUGS (1)
  1. TRELEGY ELLIPTA [Suspect]
     Active Substance: FLUTICASONE FUROATE\UMECLIDINIUM BROMIDE\VILANTEROL TRIFENATATE
     Indication: PRODUCT USED FOR UNKNOWN INDICATION
     Dosage: 200/62.5/25 MCG
     Route: 055

REACTIONS (7)
  - Constipation [Recovering/Resolving]
  - Upper respiratory tract congestion [Recovering/Resolving]
  - Headache [Recovering/Resolving]
  - Initial insomnia [Recovering/Resolving]
  - Dizziness [Recovering/Resolving]
  - Therapy interrupted [Unknown]
  - Vision blurred [Recovering/Resolving]
